FAERS Safety Report 9123317 (Version 1)
Quarter: 2013Q1

REPORT INFORMATION
  Report Type: Spontaneous
  Country: US (occurrence: US)
  Receive Date: 20130227
  Receipt Date: 20130227
  Transmission Date: 20140127
  Serious: Yes (Hospitalization)
  Sender: FDA-Public Use
  Company Number: US-BAYER-2013-023740

PATIENT
  Age: 34 Year
  Sex: Female

DRUGS (7)
  1. YASMIN [Suspect]
  2. PULMICORT [Concomitant]
     Indication: ASTHMA
  3. ALBUTEROL [Concomitant]
     Indication: ASTHMA
     Dosage: P.R.N.
  4. ANTIBIOTICS [Concomitant]
     Route: 042
  5. LEVAQUIN [Concomitant]
     Route: 042
  6. ALLEGRA [Concomitant]
  7. VICODIN [Concomitant]

REACTIONS (1)
  - Pulmonary embolism [Recovered/Resolved]
